FAERS Safety Report 19287834 (Version 2)
Quarter: 2021Q4

REPORT INFORMATION
  Report Type: Spontaneous
  Country: US (occurrence: US)
  Receive Date: 20210521
  Receipt Date: 20211209
  Transmission Date: 20220303
  Serious: Yes (Hospitalization, Other)
  Sender: FDA-Public Use
  Company Number: US-TAKEDA-2021TUS030820

PATIENT
  Age: 79 Year
  Sex: Male
  Weight: 91 kg

DRUGS (3)
  1. NINLARO [Suspect]
     Active Substance: IXAZOMIB CITRATE
     Indication: Plasma cell myeloma in remission
     Dosage: 3 MILLIGRAM
     Route: 065
     Dates: end: 20210512
  2. NINLARO [Suspect]
     Active Substance: IXAZOMIB CITRATE
     Dosage: 3 MILLIGRAM
     Route: 065
  3. REVLIMID [Concomitant]
     Active Substance: LENALIDOMIDE
     Indication: Plasma cell myeloma
     Dosage: UNK
     Dates: end: 20211201

REACTIONS (8)
  - Pneumonia bacterial [Recovering/Resolving]
  - Macular degeneration [Unknown]
  - Blindness [Unknown]
  - Memory impairment [Unknown]
  - Gastric disorder [Unknown]
  - Diarrhoea [Unknown]
  - Product storage error [Unknown]
  - Off label use [Unknown]

NARRATIVE: CASE EVENT DATE: 20211126
